FAERS Safety Report 5088664-3 (Version None)
Quarter: 2006Q3

REPORT INFORMATION
  Report Type: 
  Country: None (occurrence: None)
  Receive Date: 20060825
  Receipt Date: 20060421
  Transmission Date: 20061208
  Serious: No
  Sender: FDA-Public Use
  Company Number: US-BRISTOL-MYERS SQUIBB COMPANY-13354238

PATIENT
  Sex: Female

DRUGS (1)
  1. ACETYLCYSTEINE [Suspect]
     Route: 055
     Dates: start: 20060421, end: 20060421

REACTIONS (2)
  - ACCIDENTAL EXPOSURE [None]
  - CHEST PAIN [None]
